FAERS Safety Report 21539846 (Version 1)
Quarter: 2022Q4

REPORT INFORMATION
  Report Type: Spontaneous
  Country: US (occurrence: US)
  Receive Date: 20221102
  Receipt Date: 20221102
  Transmission Date: 20230113
  Serious: No
  Sender: FDA-Public Use
  Company Number: US-CSLP-06510449623-V12219556-24

PATIENT
  Age: 33 Year
  Sex: Female

DRUGS (2)
  1. ANTICOAGULANT SODIUM CITRATE [Suspect]
     Active Substance: SODIUM CITRATE
     Indication: Anticoagulant therapy
     Route: 050
     Dates: start: 20221008, end: 20221008
  2. women^s daily multi-vitamin [Concomitant]
     Indication: Product used for unknown indication
     Dosage: DAILY

REACTIONS (9)
  - Dizziness [Recovered/Resolved]
  - Muscle spasms [Recovering/Resolving]
  - Visual impairment [Recovering/Resolving]
  - Vision blurred [Recovering/Resolving]
  - Pallor [Recovering/Resolving]
  - Paraesthesia oral [Recovering/Resolving]
  - Feeling hot [Recovered/Resolved]
  - Myalgia [Recovering/Resolving]
  - Hypoaesthesia [Recovering/Resolving]

NARRATIVE: CASE EVENT DATE: 20221008
